FAERS Safety Report 19176105 (Version 1)
Quarter: 2021Q2

REPORT INFORMATION
  Report Type: Spontaneous
  Country: US (occurrence: US)
  Receive Date: 20210423
  Receipt Date: 20210423
  Transmission Date: 20210717
  Serious: No
  Sender: FDA-Public Use
  Company Number: US-GLAXOSMITHKLINE-USCH2021AMR020603

PATIENT
  Sex: Female
  Weight: 61.69 kg

DRUGS (3)
  1. IBUPROFEN. [Suspect]
     Active Substance: IBUPROFEN
     Indication: ORAL HERPES
  2. IBUPROFEN. [Suspect]
     Active Substance: IBUPROFEN
     Indication: APPLICATION SITE BRUISE
     Dosage: UNK
  3. IBUPROFEN. [Suspect]
     Active Substance: IBUPROFEN
     Indication: FEELING HOT

REACTIONS (4)
  - Product use in unapproved indication [Unknown]
  - Drug intolerance [Unknown]
  - Therapeutic response unexpected [Unknown]
  - Dizziness [Unknown]
